FAERS Safety Report 5881622-8 (Version None)
Quarter: 2008Q3

REPORT INFORMATION
  Report Type: 
  Country: None (occurrence: None)
  Receive Date: 20080912
  Receipt Date: 20080715
  Transmission Date: 20090109
  Serious: Yes (Other)
  Sender: FDA-Public Use
  Company Number: US-ABBOTT-08P-163-0461260-00

PATIENT
  Sex: Female
  Weight: 108.96 kg

DRUGS (8)
  1. HUMIRA [Suspect]
     Indication: RHEUMATOID ARTHRITIS
     Route: 058
     Dates: start: 20060101
  2. HUMIRA [Suspect]
     Route: 058
     Dates: start: 20080101
  3. METHOTREXATE [Concomitant]
     Indication: RHEUMATOID ARTHRITIS
     Dosage: 2.5 MG, 7 PILLS Q WEEK
     Route: 048
     Dates: start: 20080601
  4. ETODOLAC [Concomitant]
     Indication: RHEUMATOID ARTHRITIS
     Route: 048
  5. LISINOPRIL [Concomitant]
     Indication: BLOOD PRESSURE
     Route: 048
  6. MULTI-VITAMIN [Concomitant]
     Indication: VITAMIN SUPPLEMENTATION
     Route: 048
  7. FISH OIL [Concomitant]
     Indication: MINERAL SUPPLEMENTATION
     Route: 048
  8. PAIN MEDICINE [Concomitant]
     Indication: PAIN
     Dosage: 1-2 TABLETS
     Route: 048

REACTIONS (9)
  - ARTHRALGIA [None]
  - DRUG INEFFECTIVE [None]
  - GRIP STRENGTH DECREASED [None]
  - JOINT SWELLING [None]
  - LIMB OPERATION [None]
  - MOBILITY DECREASED [None]
  - PROCEDURAL COMPLICATION [None]
  - RHEUMATOID ARTHRITIS [None]
  - WRIST SURGERY [None]
